FAERS Safety Report 5788668-9 (Version None)
Quarter: 2008Q2

REPORT INFORMATION
  Report Type: 
  Country: None (occurrence: None)
  Receive Date: 20080626
  Receipt Date: 20080626
  Transmission Date: 20081010
  Serious: Yes (Other)
  Sender: FDA-Public Use
  Company Number: PHHO2005US02907

PATIENT
  Sex: Female
  Weight: 70.3 kg

DRUGS (9)
  1. ZOLEDRONIC ACID [Suspect]
     Indication: OSTEOPENIA
     Dosage: 5MG AT RANDOMISATION
     Dates: start: 20041202
  2. CALCIUM CARBONATE W/VITAMIN D NOS [Concomitant]
     Dosage: 100-1200 MG/DAY
  3. VITAMIN CAP [Concomitant]
  4. SYNTHROID [Concomitant]
     Dosage: 112 UG, QD
  5. ADVAIR DISKUS 100/50 [Concomitant]
  6. SINGULAIR [Concomitant]
  7. ALBUTEROL [Concomitant]
     Dosage: UNK, PRN
  8. PROTONIX [Concomitant]
  9. PAXIL [Concomitant]

REACTIONS (4)
  - FATIGUE [None]
  - HYPOAESTHESIA [None]
  - HYPOCALCAEMIA [None]
  - PARAESTHESIA [None]
